FAERS Safety Report 20380182 (Version 3)
Quarter: 2022Q4

REPORT INFORMATION
  Report Type: Report from Study
  Country: US (occurrence: US)
  Receive Date: 20220126
  Receipt Date: 20221207
  Transmission Date: 20230113
  Serious: Yes (Other)
  Sender: FDA-Public Use
  Company Number: US-ABBVIE-21K-163-4206980-00

PATIENT
  Age: 60 Year
  Sex: Male

DRUGS (3)
  1. HUMIRA [Suspect]
     Active Substance: ADALIMUMAB
     Indication: Crohn^s disease
     Dosage: TIME INTERVAL: 1 TOTAL: DAY 1?80MG/0.8ML X 2 ON DAY 1
     Route: 058
     Dates: start: 20211215, end: 20211215
  2. HUMIRA [Suspect]
     Active Substance: ADALIMUMAB
     Dosage: TIME INTERVAL: 1 TOTAL: DAY 15
     Route: 058
     Dates: start: 20211229, end: 20211229
  3. HUMIRA [Suspect]
     Active Substance: ADALIMUMAB
     Route: 058

REACTIONS (12)
  - Nerve compression [Unknown]
  - Gastrointestinal sounds abnormal [Not Recovered/Not Resolved]
  - Asthenia [Recovered/Resolved]
  - Constipation [Not Recovered/Not Resolved]
  - Vomiting [Not Recovered/Not Resolved]
  - Gastrointestinal sounds abnormal [Recovered/Resolved]
  - Insomnia [Recovered/Resolved]
  - Frequent bowel movements [Not Recovered/Not Resolved]
  - Drug ineffective [Unknown]
  - Abdominal distension [Not Recovered/Not Resolved]
  - Flatulence [Not Recovered/Not Resolved]
  - Crohn^s disease [Unknown]

NARRATIVE: CASE EVENT DATE: 20211201
